FAERS Safety Report 12780881 (Version 2)
Quarter: 2016Q3

REPORT INFORMATION
  Report Type: Spontaneous
  Country: IT (occurrence: IT)
  Receive Date: 20160926
  Receipt Date: 20160927
  Transmission Date: 20161109
  Serious: Yes (Other)
  Sender: FDA-Public Use
  Company Number: IT-SA-2016SA175952

PATIENT
  Sex: Female

DRUGS (4)
  1. EUTIROX [Concomitant]
     Active Substance: LEVOTHYROXINE SODIUM
  2. CAPRELSA [Suspect]
     Active Substance: VANDETANIB
     Route: 065
     Dates: start: 20160112
  3. DIBASE [Concomitant]
     Active Substance: CHOLECALCIFEROL
  4. KCL-RETARD [Concomitant]
     Active Substance: POTASSIUM CHLORIDE

REACTIONS (1)
  - Cystitis haemorrhagic [Unknown]

NARRATIVE: CASE EVENT DATE: 20160913
